FAERS Safety Report 10400328 (Version 1)
Quarter: 2014Q1

REPORT INFORMATION
  Report Type: Spontaneous
  Country: US (occurrence: None)
  Receive Date: 20130815
  Receipt Date: 20130815
  Transmission Date: 20141002
  Serious: Yes (Other)
  Sender: FDA-Public Use
  Company Number: ADR-2013-00577

PATIENT
  Age: 46 Year
  Sex: Female

DRUGS (2)
  1. LIORESAL [Suspect]
     Indication: MUSCLE SPASTICITY
     Dosage: 140.8 MCG/DAY
  2. ORAL BACLOFEN [Suspect]

REACTIONS (8)
  - Drug withdrawal syndrome [None]
  - Flushing [None]
  - Pruritus [None]
  - Muscle spasticity [None]
  - Nausea [None]
  - Muscle spasms [None]
  - Muscle twitching [None]
  - Vomiting [None]
